FAERS Safety Report 9506095 (Version 1)
Quarter: 2013Q1

REPORT INFORMATION
  Report Type: Spontaneous
  Country: US (occurrence: None)
  Receive Date: 20130201
  Receipt Date: 20130201
  Transmission Date: 20140127
  Serious: Yes (Death)
  Sender: FDA-Public Use
  Company Number: 7129052

PATIENT
  Sex: 0

DRUGS (2)
  1. CYANOKIT [Suspect]
     Indication: THERMAL BURN
  2. CYANOKIT [Suspect]
     Indication: RESPIRATORY FUME INHALATION DISORDER

REACTIONS (1)
  - Methaemoglobinaemia [None]
